FAERS Safety Report 10017916 (Version 1)
Quarter: 2014Q1

REPORT INFORMATION
  Report Type: Spontaneous
  Country: US (occurrence: US)
  Receive Date: 20140318
  Receipt Date: 20140318
  Transmission Date: 20141002
  Serious: Yes (Hospitalization, Other)
  Sender: FDA-Public Use
  Company Number: US-BRISTOL-MYERS SQUIBB COMPANY-18868125

PATIENT
  Age: 66 Year
  Sex: Male
  Weight: 63.94 kg

DRUGS (4)
  1. ERBITUX [Suspect]
     Indication: METASTASES TO LIVER
  2. ERBITUX [Suspect]
     Indication: COLORECTAL CANCER
  3. AVASTIN [Suspect]
  4. SOTALOL [Concomitant]

REACTIONS (7)
  - Pyrexia [Unknown]
  - Diarrhoea [Recovered/Resolved]
  - White blood cell count decreased [Recovering/Resolving]
  - Decreased appetite [Unknown]
  - Insomnia [Unknown]
  - Rash pustular [Unknown]
  - Nasal dryness [Unknown]
